FAERS Safety Report 10807078 (Version 1)
Quarter: 2015Q1

REPORT INFORMATION
  Report Type: Report from Study
  Country: US (occurrence: US)
  Receive Date: 20150217
  Receipt Date: 20150217
  Transmission Date: 20150721
  Serious: No
  Sender: FDA-Public Use
  Company Number: US-ABBVIE-14K-163-1252342-00

PATIENT
  Age: 41 Year
  Sex: Male

DRUGS (4)
  1. LEXAPRO [Concomitant]
     Active Substance: ESCITALOPRAM OXALATE
     Indication: DEPRESSION
  2. HUMIRA [Suspect]
     Active Substance: ADALIMUMAB
     Indication: CROHN^S DISEASE
  3. PREDNISONE. [Suspect]
     Active Substance: PREDNISONE
     Indication: CROHN^S DISEASE
     Dosage: TAPERED OFF OVER TWO MONTHS
  4. VITAMIN B12 [Concomitant]
     Active Substance: CYANOCOBALAMIN
     Indication: PRODUCT USED FOR UNKNOWN INDICATION
     Dosage: SINCE ILLEOSTOMY SURGERY
     Dates: start: 1996

REACTIONS (11)
  - Chills [Unknown]
  - Blood pressure increased [Recovered/Resolved]
  - Pain [Unknown]
  - Arthritis [Recovered/Resolved]
  - Poor quality drug administered [Unknown]
  - Abdominal pain lower [Recovered/Resolved]
  - Crohn^s disease [Unknown]
  - Incorrect product storage [Unknown]
  - Colonoscopy [Unknown]
  - Feeling abnormal [Unknown]
  - Drug effect decreased [Unknown]

NARRATIVE: CASE EVENT DATE: 201212
